FAERS Safety Report 6986713-6 (Version None)
Quarter: 2010Q3

REPORT INFORMATION
  Report Type: 
  Country: None (occurrence: None)
  Receive Date: 20100915
  Receipt Date: 20090729
  Transmission Date: 20110219
  Serious: No
  Sender: FDA-Public Use
  Company Number: US-WYE-H10368009

PATIENT
  Age: 63 Year
  Sex: Female

DRUGS (15)
  1. PRISTIQ [Suspect]
     Dosage: TITRATED UP TO 100 MG DAILY
     Route: 048
     Dates: start: 20090301
  2. TRAZODONE HCL [Concomitant]
  3. ZOLPIDEM [Concomitant]
  4. KLONOPIN [Concomitant]
  5. LAMICTAL [Concomitant]
  6. OMEPRAZOLE [Concomitant]
  7. QUININE SULFATE [Concomitant]
  8. LIPITOR [Concomitant]
  9. FUROSEMIDE [Concomitant]
  10. AVANDIA [Concomitant]
  11. STARLIX [Concomitant]
  12. AVAPRO [Concomitant]
  13. CLONIDINE [Concomitant]
  14. VITAMIN B-12 [Concomitant]
  15. ABILIFY [Concomitant]

REACTIONS (3)
  - DIPLOPIA [None]
  - DIZZINESS [None]
  - DRY MOUTH [None]
